FAERS Safety Report 4337882-8 (Version None)
Quarter: 2004Q2

REPORT INFORMATION
  Report Type: 
  Country: None (occurrence: None)
  Receive Date: 20040408
  Receipt Date: 20040329
  Transmission Date: 20050107
  Serious: Yes (Death, Hospitalization)
  Sender: FDA-Public Use
  Company Number: JP-JNJFOC-20040304423

PATIENT
  Age: 59 Year
  Sex: Female
  Weight: 60 kg

DRUGS (15)
  1. REMICADE [Suspect]
     Indication: RHEUMATOID ARTHRITIS
     Dosage: 5 MG, IN 1 WEEK, ORAL; SEE IMAGE
     Route: 048
     Dates: start: 20040129, end: 20040129
  2. REMICADE [Suspect]
     Indication: RHEUMATOID ARTHRITIS
     Dosage: 5 MG, IN 1 WEEK, ORAL; SEE IMAGE
     Route: 048
     Dates: start: 20040212, end: 20040212
  3. RHEUMATREX [Suspect]
     Indication: RHEUMATOID ARTHRITIS
     Dosage: 5 MG, 1 IN WEEK, ORAL; SEE IMAGE
     Route: 048
     Dates: start: 20031203, end: 20031216
  4. RHEUMATREX [Suspect]
     Indication: RHEUMATOID ARTHRITIS
     Dosage: 5 MG, 1 IN WEEK, ORAL; SEE IMAGE
     Route: 048
     Dates: start: 20031217, end: 20040310
  5. RHEUMATREX [Suspect]
     Indication: RHEUMATOID ARTHRITIS
     Dosage: 5 MG, 1 IN WEEK, ORAL; SEE IMAGE
     Route: 048
     Dates: start: 19970101
  6. DECADRON [Suspect]
     Indication: RHEUMATOID ARTHRITIS
     Dosage: 1.75 MG, IN 1 DAY, ORAL
     Route: 048
     Dates: start: 20020401
  7. CALCIUM LACTATE (POWDER) [Concomitant]
  8. VASOLAN (TABLETS) VERAPAMIL HYDROCHLORIDE [Concomitant]
  9. NEUQUINON (UBIDECARENONE) TABLETS [Concomitant]
  10. MUSCOTA (ALL OTHER THERAPEUTIC PRODUCTS) TABLETS [Concomitant]
  11. LASIX [Concomitant]
  12. ALFAROL (ALFACALCIDOL) TABLETS [Concomitant]
  13. BENET (ALL OTHER THERAPEUTIC PRODUCTS) TABLETS [Concomitant]
  14. PELEX TABLETS [Concomitant]
  15. SLOW-K [Concomitant]

REACTIONS (9)
  - ABASIA [None]
  - CARDIAC AMYLOIDOSIS [None]
  - CARDIAC FAILURE [None]
  - CUSHING'S SYNDROME [None]
  - DRUG INEFFECTIVE [None]
  - INTERSTITIAL LUNG DISEASE [None]
  - MULTI-ORGAN FAILURE [None]
  - RHINORRHOEA [None]
  - SECONDARY AMYLOIDOSIS [None]
